APPROVED DRUG PRODUCT: RISPERIDONE
Active Ingredient: RISPERIDONE
Strength: 12.5MG/VIAL
Dosage Form/Route: POWDER;INTRAMUSCULAR
Application: A218586 | Product #001 | TE Code: AB
Applicant: AMNEAL EU LTD
Approved: Sep 2, 2025 | RLD: No | RS: No | Type: RX